FAERS Safety Report 8773446 (Version 2)
Quarter: 2012Q4

REPORT INFORMATION
  Report Type: 
  Country: US (occurrence: US)
  Receive Date: 20120907
  Receipt Date: 20120911
  Transmission Date: 20130627
  Serious: Yes (Hospitalization)
  Sender: FDA-Public Use
  Company Number: US-VERTEX PHARMACEUTICAL INC.-AE-2012-011569

PATIENT

DRUGS (6)
  1. INCIVEK [Suspect]
     Indication: HEPATITIS C
     Dosage: 750 mg, tid
     Route: 048
     Dates: start: 20120715, end: 20120810
  2. RIBAVIRIN [Concomitant]
     Indication: HEPATITIS C
     Dosage: UNK
     Route: 048
     Dates: start: 20120715, end: 20120811
  3. PEGASYS [Concomitant]
     Indication: HEPATITIS C
     Dosage: 180 �g, UNK
     Route: 058
     Dates: start: 20120715, end: 20120811
  4. LOSARTAN [Concomitant]
     Dosage: .5 DF, qd
     Route: 048
  5. SERTRALINE [Concomitant]
     Dosage: 200 mg, qd
     Route: 048
  6. TRAZODONE [Concomitant]
     Indication: INSOMNIA
     Dosage: 50 mg, qd
     Route: 048

REACTIONS (6)
  - Anaemia [Unknown]
  - Dyspnoea [Unknown]
  - Dizziness [Not Recovered/Not Resolved]
  - Pallor [Not Recovered/Not Resolved]
  - Asthenia [Not Recovered/Not Resolved]
  - Fatigue [Not Recovered/Not Resolved]
